FAERS Safety Report 11703431 (Version 1)
Quarter: 2015Q4

REPORT INFORMATION
  Report Type: Spontaneous
  Country: US (occurrence: US)
  Receive Date: 20151105
  Receipt Date: 20151105
  Transmission Date: 20160304
  Serious: No
  Sender: FDA-Public Use
  Company Number: US-ANACOR-2015ANA00096

PATIENT
  Age: 44 Year
  Sex: Male
  Weight: 72.56 kg

DRUGS (4)
  1. KERYDIN [Suspect]
     Active Substance: TAVABOROLE
     Indication: ONYCHOMYCOSIS
     Dosage: 1-2 GTT, UP TO 2X/DAY
     Route: 061
     Dates: start: 201506, end: 20150717
  2. PSYLLIUM HUSK POWDER [Concomitant]
     Dosage: UNK
  3. AXIA 3 [Concomitant]
     Dosage: UNK
  4. PRILOSEC [Concomitant]
     Active Substance: OMEPRAZOLE MAGNESIUM
     Dosage: UNK, AS NEEDED
     Dates: start: 2015

REACTIONS (6)
  - Application site inflammation [Recovered/Resolved]
  - Application site infection [Recovered/Resolved]
  - Application site pruritus [Recovered/Resolved]
  - Inappropriate schedule of drug administration [Recovered/Resolved]
  - Application site scar [Recovering/Resolving]
  - Application site erythema [Recovering/Resolving]

NARRATIVE: CASE EVENT DATE: 201506
